FAERS Safety Report 25689732 (Version 1)
Quarter: 2025Q3

REPORT INFORMATION
  Report Type: Spontaneous
  Country: US (occurrence: None)
  Receive Date: 20250815
  Receipt Date: 20250815
  Transmission Date: 20251020
  Serious: Yes (Death)
  Sender: FDA-CTU
  Company Number: None

PATIENT
  Age: 76 Year
  Sex: Male

DRUGS (5)
  1. ASPIRIN [Suspect]
     Active Substance: ASPIRIN
  2. APIXABAN [Suspect]
     Active Substance: APIXABAN
  3. OMEPRAZOLE [Suspect]
     Active Substance: OMEPRAZOLE
  4. APIXABAN [Concomitant]
     Active Substance: APIXABAN
  5. ASPIRIN [Concomitant]
     Active Substance: ASPIRIN

REACTIONS (11)
  - Faeces discoloured [None]
  - Cardiac failure acute [None]
  - International normalised ratio increased [None]
  - Pleural effusion [None]
  - Tachypnoea [None]
  - Oesophageal candidiasis [None]
  - Metabolic acidosis [None]
  - Anuria [None]
  - Blood creatinine increased [None]
  - Liver function test increased [None]
  - Haemodialysis [None]

NARRATIVE: CASE EVENT DATE: 20240211
